FAERS Safety Report 20347492 (Version 1)
Quarter: 2022Q1

REPORT INFORMATION
  Report Type: Spontaneous
  Country: US (occurrence: None)
  Receive Date: 20220117
  Receipt Date: 20220117
  Transmission Date: 20220423
  Serious: Yes (Other)
  Sender: FDA-Public Use
  Company Number: None

PATIENT
  Age: 38 Year
  Sex: Female
  Weight: 134.1 kg

DRUGS (10)
  1. SOTROVIMAB [Suspect]
     Active Substance: SOTROVIMAB
     Indication: COVID-19
     Dosage: OTHER FREQUENCY : ONCE;?
     Route: 041
     Dates: start: 20220111, end: 20220111
  2. ALBUTEROL SULFATE [Concomitant]
     Active Substance: ALBUTEROL SULFATE
     Dates: start: 20091019
  3. ALPRAZOLAM [Concomitant]
     Active Substance: ALPRAZOLAM
  4. DULOXETINE [Concomitant]
     Active Substance: DULOXETINE
     Dates: start: 20190401
  5. FERROUS SULFATE [Concomitant]
     Active Substance: FERROUS SULFATE
     Dates: start: 20090406
  6. ipratropium-albuterol inhaler [Concomitant]
     Dates: start: 20190822
  7. medroxvprogesterone [Concomitant]
     Dates: start: 20200621
  8. MONTELUKAST [Concomitant]
     Active Substance: MONTELUKAST SODIUM
  9. PREDNISONE [Concomitant]
     Active Substance: PREDNISONE
     Dates: start: 20220103
  10. TRANEXAMIC ACID [Concomitant]
     Active Substance: TRANEXAMIC ACID
     Dates: start: 20150803

REACTIONS (6)
  - Dizziness [None]
  - Respiratory rate increased [None]
  - Hypertension [None]
  - Nausea [None]
  - Vomiting [None]
  - Abdominal pain [None]

NARRATIVE: CASE EVENT DATE: 20220111
